FAERS Safety Report 13398418 (Version 13)
Quarter: 2018Q4

REPORT INFORMATION
  Report Type: Report from Study
  Country: US (occurrence: US)
  Receive Date: 20170403
  Receipt Date: 20181031
  Transmission Date: 20190204
  Serious: Yes (Hospitalization, Other)
  Sender: FDA-Public Use
  Company Number: US-ACTELION-A-NJ2016-136822

PATIENT
  Age: 51 Year
  Sex: Male
  Weight: 108.84 kg

DRUGS (4)
  1. VELETRI [Suspect]
     Active Substance: EPOPROSTENOL
     Indication: PULMONARY ARTERIAL HYPERTENSION
     Dosage: 22 NG/KG, PER MIN
     Route: 042
     Dates: start: 20180913
  2. VELETRI [Suspect]
     Active Substance: EPOPROSTENOL
     Dosage: 20 NG/KG, PER MIN
     Route: 042
     Dates: start: 20101020
  3. WARFARIN [Concomitant]
     Active Substance: WARFARIN
  4. VELETRI [Suspect]
     Active Substance: EPOPROSTENOL
     Dosage: 20 NG/KG, PER MIN
     Route: 042
     Dates: start: 20101020

REACTIONS (40)
  - Device occlusion [Recovered/Resolved]
  - Oropharyngeal pain [Recovered/Resolved]
  - Pain in jaw [Recovering/Resolving]
  - Catheter site swelling [Recovered/Resolved]
  - Catheter site erythema [Recovered/Resolved]
  - Hypoaesthesia [Unknown]
  - Bone pain [Not Recovered/Not Resolved]
  - Condition aggravated [Unknown]
  - Nasopharyngitis [Unknown]
  - Flushing [Recovering/Resolving]
  - Insomnia [Unknown]
  - Influenza like illness [Unknown]
  - Dyspnoea exertional [Recovering/Resolving]
  - Nausea [Unknown]
  - Diarrhoea [Recovering/Resolving]
  - Rash [Unknown]
  - Catheter placement [Unknown]
  - Device alarm issue [Recovered/Resolved]
  - Hypertrophy of tongue papillae [Unknown]
  - Fatigue [Unknown]
  - Rash papular [Unknown]
  - Dermatitis infected [Unknown]
  - Catheter management [Unknown]
  - Thrombosis in device [Unknown]
  - Product deposit [Recovered/Resolved]
  - Oedema [Unknown]
  - Cellulitis [Unknown]
  - Abdominal discomfort [Unknown]
  - Pulmonary arterial pressure increased [Unknown]
  - Catheter site related reaction [Unknown]
  - Rash erythematous [Unknown]
  - Dyspnoea [Unknown]
  - Unevaluable event [Not Recovered/Not Resolved]
  - Oxygen saturation decreased [Unknown]
  - Bronchitis [Unknown]
  - Rectal haemorrhage [Unknown]
  - Arthralgia [Unknown]
  - Cough [Recovered/Resolved]
  - Oedema peripheral [Recovering/Resolving]
  - Productive cough [Unknown]

NARRATIVE: CASE EVENT DATE: 201605
